FAERS Safety Report 22608053 (Version 1)
Quarter: 2023Q2

REPORT INFORMATION
  Report Type: Spontaneous
  Country: US (occurrence: None)
  Receive Date: 20230616
  Receipt Date: 20230616
  Transmission Date: 20230722
  Serious: Yes (Hospitalization, Other)
  Sender: FDA-Public Use
  Company Number: US-Hikma Pharmaceuticals USA Inc.-US-H14001-23-01983

PATIENT
  Age: 29 Year
  Sex: Female

DRUGS (6)
  1. LITHIUM [Suspect]
     Active Substance: LITHIUM
     Indication: Bipolar disorder
     Dosage: UNKNOWN
     Route: 065
  2. LITHIUM [Suspect]
     Active Substance: LITHIUM
     Route: 065
  3. LITHIUM [Suspect]
     Active Substance: LITHIUM
     Route: 065
  4. RISPERIDONE [Suspect]
     Active Substance: RISPERIDONE
     Indication: Product used for unknown indication
     Dosage: UNKNOWN
     Route: 065
  5. ARIPIPRAZOLE [Suspect]
     Active Substance: ARIPIPRAZOLE
     Indication: Product used for unknown indication
     Dosage: UNKNOWN
     Route: 065
  6. LUMATEPERONE [Suspect]
     Active Substance: LUMATEPERONE
     Indication: Product used for unknown indication
     Dosage: UNKNOWN
     Route: 065

REACTIONS (21)
  - Abnormal behaviour [Unknown]
  - Aggression [Unknown]
  - Delusion [Not Recovered/Not Resolved]
  - Speech disorder [Unknown]
  - Pressure of speech [Unknown]
  - Psychomotor hyperactivity [Unknown]
  - Musculoskeletal stiffness [Unknown]
  - Cogwheel rigidity [Not Recovered/Not Resolved]
  - Tremor [Unknown]
  - Hypokinesia [Unknown]
  - Condition aggravated [Unknown]
  - Restlessness [Unknown]
  - Dysphagia [Unknown]
  - Salivary hypersecretion [Recovered/Resolved]
  - Euphoric mood [Unknown]
  - Insomnia [Unknown]
  - Treatment noncompliance [Unknown]
  - COVID-19 [Unknown]
  - Extrapyramidal disorder [Recovered/Resolved]
  - Affect lability [Unknown]
  - Nuchal rigidity [Not Recovered/Not Resolved]
